FAERS Safety Report 16072154 (Version 1)
Quarter: 2019Q1

REPORT INFORMATION
  Report Type: Spontaneous
  Country: US (occurrence: US)
  Receive Date: 20190213
  Receipt Date: 20190213
  Transmission Date: 20190418
  Serious: Yes (Life-Threatening, Hospitalization, Disabling, Congenital Anomaly)
  Sender: FDA-Public Use
  Company Number: None

PATIENT
  Age: 22 Year
  Sex: Female
  Weight: 65.25 kg

DRUGS (2)
  1. FAMILY DOLLAR BRAND BABY ASPIRIN [Suspect]
     Active Substance: ASPIRIN
     Dosage: ?          QUANTITY:1 TABLET(S);?
     Route: 048
  2. FAMILY DOLLAR BRAND IBUPROFEN [Suspect]
     Active Substance: IBUPROFEN

REACTIONS (1)
  - Exposure during pregnancy [None]

NARRATIVE: CASE EVENT DATE: 20190130
